FAERS Safety Report 7674398-5 (Version None)
Quarter: 2011Q3

REPORT INFORMATION
  Report Type: 
  Country: None (occurrence: None)
  Receive Date: 20110810
  Receipt Date: 20110729
  Transmission Date: 20111222
  Serious: Yes (Hospitalization, Other)
  Sender: FDA-Public Use
  Company Number: FR-ELI_LILLY_AND_COMPANY-FR201107007846

PATIENT
  Sex: Male
  Weight: 45 kg

DRUGS (11)
  1. ALIMTA [Suspect]
     Dosage: 500 MG, QD
     Route: 065
     Dates: start: 20110614, end: 20110614
  2. ALIMTA [Suspect]
     Indication: LUNG ADENOCARCINOMA
     Dosage: 500 MG, QD
     Route: 042
     Dates: start: 20110412
  3. PAROXETINE HCL [Concomitant]
     Dosage: UNK, UNKNOWN
     Route: 065
  4. CARBOPLATIN [Concomitant]
     Dosage: 10 DF, UNKNOWN
     Route: 042
     Dates: start: 20110614
  5. CARBOPLATIN [Concomitant]
     Indication: LUNG ADENOCARCINOMA
     Dosage: 10 MG/ML, UNKNOWN
     Route: 042
     Dates: start: 20110412
  6. CARBOPLATIN [Concomitant]
     Dosage: 10 MG/ML, UNKNOWN
     Route: 042
     Dates: start: 20110524
  7. PREDNISONE [Concomitant]
     Dosage: 20 MG, UNKNOWN
     Route: 065
  8. ALLOPURINOL [Concomitant]
     Dosage: UNK, UNKNOWN
     Route: 065
  9. NEXIUM [Concomitant]
     Dosage: UNK, UNKNOWN
     Route: 065
  10. ALIMTA [Suspect]
     Dosage: 500 MG, QD
     Route: 042
     Dates: start: 20110524
  11. FOLIC ACID [Concomitant]
     Dosage: UNK, UNKNOWN
     Route: 065

REACTIONS (3)
  - ATRIAL TACHYCARDIA [None]
  - SYNCOPE [None]
  - ARTERIOSCLEROSIS CORONARY ARTERY [None]
